FAERS Safety Report 26145333 (Version 1)
Quarter: 2025Q4

REPORT INFORMATION
  Report Type: Spontaneous
  Country: GB (occurrence: GB)
  Receive Date: 20251211
  Receipt Date: 20251211
  Transmission Date: 20260118
  Serious: Yes (Hospitalization)
  Sender: MYLAN
  Company Number: GB-MYLANLABS-2025M1099307

PATIENT
  Sex: Male

DRUGS (15)
  1. CLOZARIL [Suspect]
     Active Substance: CLOZAPINE
     Indication: Schizoaffective disorder
     Dosage: 125 MILLIGRAM, QD
  2. LITHIUM CARBONATE [Concomitant]
     Active Substance: LITHIUM CARBONATE
     Dosage: 400 MILLIGRAM, QD
  3. SOLIFENACIN SUCCINATE [Concomitant]
     Active Substance: SOLIFENACIN SUCCINATE
     Dosage: 5 MILLIGRAM, QD
  4. RAMIPRIL [Concomitant]
     Active Substance: RAMIPRIL
     Dosage: 5 MILLIGRAM, QD
  5. ALOGLIPTIN [Concomitant]
     Active Substance: ALOGLIPTIN
     Dosage: 25 MILLIGRAM, QD
  6. ATORVASTATIN [Concomitant]
     Active Substance: ATORVASTATIN
     Dosage: 40 MILLIGRAM, QD
  7. CHOLECALCIFEROL [Concomitant]
     Active Substance: CHOLECALCIFEROL
     Dosage: UNK, QD (800 UNITS DAILY)
  8. METFORMIN [Concomitant]
     Active Substance: METFORMIN HYDROCHLORIDE
     Dosage: 2 GRAM, QD
  9. NICOTINE [Concomitant]
     Active Substance: NICOTINE
     Dosage: 25 MILLIGRAM, QD (REMOVE AFTER 16  HOURS
  10. PROMETHAZINE [Concomitant]
     Active Substance: PROMETHAZINE HYDROCHLORIDE
     Dosage: 25 MILLIGRAM, PRN (4 HOURS, MAX 100MG (PO + IM) IN 24 HOURS)
  11. PROMETHAZINE [Concomitant]
     Active Substance: PROMETHAZINE HYDROCHLORIDE
     Dosage: 25 MILLIGRAM, PRN (4 HOURS, MAX 100MG (PO + IM) IN 24 HOURS)
  12. LORAZEPAM [Concomitant]
     Active Substance: LORAZEPAM
     Dosage: 1 MILLIGRAM, PRN (EVERY 2 HOURS, MAX 2MG IN 24 HOURS)
  13. CODEINE PHOSPHATE [Concomitant]
     Active Substance: CODEINE PHOSPHATE
     Dosage: 30 MILLIGRAM, PRN (EVERY 6 HOURS, MAX 120MG IN 24 HOURS)
  14. ACETAMINOPHEN [Concomitant]
     Active Substance: ACETAMINOPHEN
     Dosage: 1 GRAM, QD (EVERY 4 HOURS, MAX 4G IN 24 HOURS)
  15. NICOTINE [Concomitant]
     Active Substance: NICOTINE
     Dosage: 4 MILLIGRAM, PRN (EVERY 1 HOUR, MAX 60MG IN 24 HOURS)

REACTIONS (13)
  - Hospitalisation [Unknown]
  - Thinking abnormal [Unknown]
  - Delusion of grandeur [Unknown]
  - Mood altered [Unknown]
  - Abnormal behaviour [Unknown]
  - Impulse-control disorder [Unknown]
  - Stress [Unknown]
  - Pressure of speech [Unknown]
  - Anosognosia [Unknown]
  - Aggression [Unknown]
  - Mental disorder [Unknown]
  - Treatment noncompliance [Unknown]
  - Off label use [Unknown]
